FAERS Safety Report 8594119 (Version 1)
Quarter: 2012Q4

REPORT INFORMATION
  Report Type: 
  Country: US (occurrence: US)
  Receive Date: 20120913
  Receipt Date: 20120913
  Transmission Date: 20130627
  Serious: No
  Sender: FDA-Public Use
  Company Number: US-BAYER-2012-050069

PATIENT
  Age: 82 Year
  Sex: Female
  Weight: 70 kg

DRUGS (8)
  1. ALEVE CAPLET/TABLET,MIDOL EXTENDED RELIEF CAPLET [Suspect]
     Indication: ARTHRALGIA
     Dosage: UNK, PRN
     Route: 048
  2. METOPROLOL [Concomitant]
     Dosage: 1 u, UNK
  3. ECOTRIN [Concomitant]
  4. MIRAPEX [Concomitant]
  5. FELODIPIN [Concomitant]
  6. HYDROCHLOROTHIAZIDE [Concomitant]
  7. LEVOTHYROXINE [Concomitant]
  8. PRAVASTATIN [Concomitant]

REACTIONS (2)
  - Drug ineffective [Unknown]
  - Drug ineffective [Unknown]
